FAERS Safety Report 4830994-1 (Version None)
Quarter: 2005Q4

REPORT INFORMATION
  Report Type: 
  Country: None (occurrence: None)
  Receive Date: 20051115
  Receipt Date: 20051115
  Transmission Date: 20060501
  Serious: Yes (Hospitalization)
  Sender: FDA-Public Use
  Company Number: None

PATIENT
  Age: 72 Year
  Sex: Male
  Weight: 45.8133 kg

DRUGS (2)
  1. RITUXIMAB [Suspect]
     Indication: CHRONIC LYMPHOCYTIC LEUKAEMIA
     Dosage: 750MG IV  9/9/05  (2ND DOSE), 115MG IV 9/7/05 (1ST DOSE GIVEN
     Route: 042
     Dates: start: 20050907
  2. RITUXIMAB [Suspect]
     Indication: CHRONIC LYMPHOCYTIC LEUKAEMIA
     Dosage: 750MG IV  9/9/05  (2ND DOSE), 115MG IV 9/7/05 (1ST DOSE GIVEN
     Route: 042
     Dates: start: 20050909

REACTIONS (10)
  - BLINDNESS TRANSIENT [None]
  - BLOOD PRESSURE DECREASED [None]
  - CHILLS [None]
  - DIZZINESS [None]
  - HEART RATE DECREASED [None]
  - HYPERHIDROSIS [None]
  - INFUSION RELATED REACTION [None]
  - MYALGIA [None]
  - OXYGEN SATURATION DECREASED [None]
  - PALLOR [None]
